FAERS Safety Report 24199374 (Version 4)
Quarter: 2024Q3

REPORT INFORMATION
  Report Type: Spontaneous
  Country: US (occurrence: US)
  Receive Date: 20240812
  Receipt Date: 20240830
  Transmission Date: 20241017
  Serious: Yes (Hospitalization, Other)
  Sender: GILEAD
  Company Number: US-GILEAD-2024-0683651

PATIENT
  Age: 45 Year
  Sex: Male

DRUGS (3)
  1. ATRIPLA [Suspect]
     Active Substance: EFAVIRENZ\EMTRICITABINE\TENOFOVIR DISOPROXIL FUMARATE
     Indication: Osteopenia
     Dosage: UNK
     Route: 065
     Dates: start: 20100101, end: 20140111
  2. TRUVADA [Suspect]
     Active Substance: EMTRICITABINE\TENOFOVIR DISOPROXIL FUMARATE
     Indication: Blood potassium decreased
     Dosage: UNK
     Route: 065
     Dates: start: 20131001
  3. WELLBUTRIN [Concomitant]
     Active Substance: BUPROPION HYDROCHLORIDE
     Indication: Depression
     Dates: start: 19960315

REACTIONS (3)
  - Pain [Not Recovered/Not Resolved]
  - Renal disorder [Unknown]
  - Off label use [Unknown]
